FAERS Safety Report 4309776-5 (Version None)
Quarter: 2004Q1

REPORT INFORMATION
  Report Type: 
  Country: None (occurrence: None)
  Receive Date: 20040301
  Receipt Date: 20040219
  Transmission Date: 20041129
  Serious: Yes (Other)
  Sender: FDA-Public Use
  Company Number: US-JNJFOC-20040205399

PATIENT
  Age: 80 Year
  Sex: Female

DRUGS (12)
  1. DITROPAN XL [Suspect]
     Indication: MICTURITION URGENCY
     Dosage: SEE IMAGE
     Route: 048
     Dates: start: 20010101
  2. DITROPAN XL [Suspect]
     Indication: POLLAKIURIA
     Dosage: SEE IMAGE
     Route: 048
     Dates: start: 20010101
  3. DITROPAN XL [Suspect]
     Indication: MICTURITION URGENCY
     Dosage: SEE IMAGE
     Route: 048
     Dates: start: 20040115
  4. DITROPAN XL [Suspect]
     Indication: POLLAKIURIA
     Dosage: SEE IMAGE
     Route: 048
     Dates: start: 20040115
  5. DETROL [Suspect]
     Indication: DRUG USE FOR UNKNOWN INDICATION
     Dates: start: 20020201
  6. ACCUPRIL [Concomitant]
  7. LASIX [Concomitant]
  8. K-DUR 10 [Concomitant]
  9. TRIAZAC (BENZOYL PEROXIDE) [Concomitant]
  10. ADVAIR (SERETIDE MITE) [Concomitant]
  11. REMINYL (GALANTAMINE) [Concomitant]
  12. ZOCOR [Concomitant]

REACTIONS (1)
  - TRANSIENT ISCHAEMIC ATTACK [None]
